FAERS Safety Report 14922617 (Version 4)
Quarter: 2022Q2

REPORT INFORMATION
  Report Type: Report from Study
  Country: US (occurrence: US)
  Receive Date: 20180522
  Receipt Date: 20220512
  Transmission Date: 20220720
  Serious: No
  Sender: FDA-Public Use
  Company Number: PHHY2018US005126

PATIENT
  Sex: Female
  Weight: 89.27 kg

DRUGS (3)
  1. XOLAIR [Suspect]
     Active Substance: OMALIZUMAB
     Indication: Idiopathic urticaria
     Dosage: 300 MG, EVERY 4 WEEKS, DATE OF TREATMENT: 29 MAR 2018, 18 MAY 2018, 15 JUN 2018, 20 JUL 2018, 22 AUG
     Route: 058
  2. XOLAIR [Suspect]
     Active Substance: OMALIZUMAB
     Dosage: 300 MG, EVERY 3 WEEKS
     Route: 058
  3. CLONAZEPAM [Suspect]
     Active Substance: CLONAZEPAM
     Indication: Product used for unknown indication
     Dosage: UNK
     Route: 065

REACTIONS (10)
  - Fatigue [Unknown]
  - Ear pruritus [Unknown]
  - Pharyngitis [Unknown]
  - Back pain [Unknown]
  - Depression [Unknown]
  - Anxiety [Unknown]
  - Oropharyngeal lymphoid hyperplasia [Unknown]
  - Arthralgia [Unknown]
  - Off label use [Unknown]
  - Intentional product misuse [Unknown]
